FAERS Safety Report 7124813-0 (Version None)
Quarter: 2010Q4

REPORT INFORMATION
  Report Type: 
  Country: None (occurrence: None)
  Receive Date: 20101129
  Receipt Date: 20101118
  Transmission Date: 20110411
  Serious: Yes (Other)
  Sender: FDA-Public Use
  Company Number: US-JNJFOC-20101107020

PATIENT
  Age: 5 Year
  Sex: Female
  Weight: 24 kg

DRUGS (3)
  1. INFLIXIMAB, RECOMBINANT [Suspect]
     Indication: UVEITIS
     Dosage: WEEK 2
     Route: 042
  2. INFLIXIMAB, RECOMBINANT [Suspect]
     Dosage: WEEK 6
     Route: 042
  3. INFLIXIMAB, RECOMBINANT [Suspect]
     Dosage: WEEK 0
     Route: 042

REACTIONS (3)
  - ARTHRALGIA [None]
  - INFUSION RELATED REACTION [None]
  - VOMITING [None]
